FAERS Safety Report 5415283-9 (Version None)
Quarter: 2007Q3

REPORT INFORMATION
  Report Type: 
  Country: None (occurrence: None)
  Receive Date: 20070813
  Receipt Date: 20070803
  Transmission Date: 20080115
  Serious: Yes (Death)
  Sender: FDA-Public Use
  Company Number: 2007AL003162

PATIENT
  Age: 95 Year
  Sex: Male

DRUGS (5)
  1. GABAPENTIN [Suspect]
     Indication: FACIAL PAIN
     Dosage: 300 MG;TID;PO
     Route: 048
  2. SALBUTAMOL [Concomitant]
  3. FUROSEMIDE [Concomitant]
  4. ENALAPRIL MALEATE [Concomitant]
  5. AMLODIPINE [Concomitant]

REACTIONS (1)
  - TREMOR [None]
